FAERS Safety Report 8160883-9 (Version None)
Quarter: 2012Q1

REPORT INFORMATION
  Report Type: 
  Country: None (occurrence: None)
  Receive Date: 20120223
  Receipt Date: 20120220
  Transmission Date: 20120608
  Serious: Yes (Life-Threatening)
  Sender: FDA-Public Use
  Company Number: PHHY2011JP104903

PATIENT
  Sex: Male
  Weight: 64 kg

DRUGS (18)
  1. CLOZARIL [Suspect]
     Dosage: 100 MG
     Route: 048
     Dates: start: 20110503, end: 20110504
  2. CLOZARIL [Suspect]
     Dosage: 600 MG
     Route: 048
     Dates: start: 20110818, end: 20111027
  3. CLOZARIL [Suspect]
     Dosage: 150 MG
     Route: 048
     Dates: start: 20110510, end: 20110511
  4. CLOZARIL [Suspect]
     Dosage: 400 MG
     Route: 048
     Dates: start: 20110523, end: 20110526
  5. CLOZARIL [Suspect]
     Dosage: 400 MG
     Route: 048
     Dates: start: 20110726, end: 20110810
  6. CLOZARIL [Suspect]
     Indication: SCHIZOPHRENIA, PARANOID TYPE
     Dosage: 12.5 MG
     Route: 048
     Dates: start: 20110426, end: 20110426
  7. CLOZARIL [Suspect]
     Dosage: 50 MG
     Route: 048
     Dates: start: 20110428, end: 20110502
  8. CLOZARIL [Suspect]
     Dosage: 300 MG
     Route: 048
     Dates: start: 20110519, end: 20110522
  9. CLOZARIL [Suspect]
     Dosage: 600 MG
     Route: 048
     Dates: start: 20110603, end: 20110704
  10. CLOZARIL [Suspect]
     Dosage: 500 MG
     Route: 048
     Dates: start: 20110705, end: 20110725
  11. CLOZARIL [Suspect]
     Dosage: 500 MG
     Route: 048
     Dates: start: 20110811, end: 20110817
  12. CLOZARIL [Suspect]
     Route: 048
  13. CLOZARIL [Suspect]
     Dosage: 25 MG
     Route: 048
     Dates: start: 20110427, end: 20110427
  14. CLOZARIL [Suspect]
     Dosage: 200 MG
     Route: 048
     Dates: start: 20110515, end: 20110518
  15. QUETIAPINE FUMARATE [Concomitant]
  16. CLOZARIL [Suspect]
     Dosage: 125 MG
     Route: 048
     Dates: start: 20110505, end: 20110509
  17. CLOZARIL [Suspect]
     Dosage: 175 MG
     Route: 048
     Dates: start: 20110512, end: 20110514
  18. CLOZARIL [Suspect]
     Dosage: 500 MG
     Route: 048
     Dates: start: 20110527, end: 20110602

REACTIONS (11)
  - BLOOD PRESSURE SYSTOLIC INCREASED [None]
  - SUICIDAL IDEATION [None]
  - HEART RATE INCREASED [None]
  - NEUTROPHIL COUNT INCREASED [None]
  - MALAISE [None]
  - PSYCHIATRIC SYMPTOM [None]
  - IRRITABILITY [None]
  - LYMPHOCYTE COUNT DECREASED [None]
  - SUICIDE ATTEMPT [None]
  - ANXIETY [None]
  - TENSION [None]
